FAERS Safety Report 5566417-7 (Version None)
Quarter: 2007Q4

REPORT INFORMATION
  Report Type: 
  Country: None (occurrence: None)
  Receive Date: 20071217
  Receipt Date: 20071217
  Transmission Date: 20080405
  Serious: Yes (Death)
  Sender: FDA-Public Use
  Company Number: None

PATIENT
  Age: 63 Year
  Sex: Male
  Weight: 82 kg

DRUGS (13)
  1. ZIDOVUDINE [Suspect]
     Indication: HIV INFECTION
     Dosage: 300 MG TWICE DAILY PO
     Route: 048
     Dates: start: 20061010, end: 20070101
  2. LAMIVUDINE [Suspect]
     Indication: HIV INFECTION
     Dosage: 150 MG TWICE DAILY PO
     Route: 048
     Dates: start: 20050824, end: 20070101
  3. EFAVIRENZ [Suspect]
     Indication: HIV INFECTION
     Dosage: 600 MG ONCE A DAY PO
     Route: 048
     Dates: start: 20050824, end: 20070101
  4. DEXTERM [Concomitant]
  5. METHYLSALIC OINTMENT [Concomitant]
  6. VITAMIN CAP [Concomitant]
  7. THIAMINE [Concomitant]
  8. AMPHOGEL [Concomitant]
  9. BRUFEN [Concomitant]
  10. CHLOROMYCETIN EYE OINTMENT [Concomitant]
  11. CIMETIDINE [Concomitant]
  12. VITAMIN B [Concomitant]
  13. ASCORBIC ACID [Concomitant]

REACTIONS (7)
  - BLOOD PRESSURE INCREASED [None]
  - CD4 LYMPHOCYTES DECREASED [None]
  - FALL [None]
  - HYPERLACTACIDAEMIA [None]
  - HYPERTENSION [None]
  - TREATMENT NONCOMPLIANCE [None]
  - UPPER RESPIRATORY TRACT INFECTION [None]
